FAERS Safety Report 7508747-5 (Version None)
Quarter: 2011Q2

REPORT INFORMATION
  Report Type: 
  Country: None (occurrence: None)
  Receive Date: 20110527
  Receipt Date: 20101213
  Transmission Date: 20111010
  Serious: No
  Sender: FDA-Public Use
  Company Number: A0899537A

PATIENT
  Age: 75 Year
  Sex: Female

DRUGS (7)
  1. THYROID MEDICATION [Concomitant]
  2. OSTEOPOROSIS MEDICATION [Concomitant]
  3. NIASPAN [Concomitant]
  4. BENICAR [Concomitant]
  5. PULMICORT [Concomitant]
  6. METFORMIN HCL [Concomitant]
  7. VENTOLIN [Suspect]
     Indication: ASTHMA
     Dosage: 2PUFF FOUR TIMES PER DAY
     Route: 055
     Dates: start: 20101125

REACTIONS (1)
  - CHEST DISCOMFORT [None]
